FAERS Safety Report 8541730-X (Version None)
Quarter: 2012Q3

REPORT INFORMATION
  Report Type: 
  Country: None (occurrence: None)
  Receive Date: 20120726
  Receipt Date: 20120717
  Transmission Date: 20120928
  Serious: Yes (Disabling, Other)
  Sender: FDA-Public Use
  Company Number: US-009507513-1106USA02218

PATIENT

DRUGS (3)
  1. FOSAMAX [Suspect]
     Indication: BONE DENSITY DECREASED
     Dosage: 70 MG, UNK
     Route: 048
     Dates: start: 20020312, end: 20071010
  2. VERAPAMIL EXTENDED-RELEASE [Concomitant]
     Indication: HYPERTENSION
     Dates: start: 19900101
  3. SYNTHROID [Concomitant]
     Indication: THYROID DISORDER
     Dates: start: 19900101

REACTIONS (11)
  - CEMENTO OSSEOUS DYSPLASIA [None]
  - GRANULOMA [None]
  - OROPHARYNGEAL DISCOMFORT [None]
  - DENTAL FISTULA [None]
  - THROMBOSIS [None]
  - NAUSEA [None]
  - OSTEONECROSIS OF JAW [None]
  - MYOCARDIAL INFARCTION [None]
  - VENTRICULAR EXTRASYSTOLES [None]
  - OSTEOMYELITIS [None]
  - BLOOD CHOLESTEROL INCREASED [None]
